FAERS Safety Report 25211891 (Version 4)
Quarter: 2025Q2

REPORT INFORMATION
  Report Type: Report from Study
  Country: CA (occurrence: CA)
  Receive Date: 20250418
  Receipt Date: 20250527
  Transmission Date: 20250717
  Serious: No
  Sender: ABBVIE
  Company Number: CA-ABBVIE-6232923

PATIENT
  Age: 85 Year
  Sex: Male

DRUGS (48)
  1. VENETOCLAX [Suspect]
     Active Substance: VENETOCLAX
     Indication: Acute myeloid leukaemia
     Dosage: DOSE INCREASE
     Route: 048
     Dates: start: 20240318, end: 20240319
  2. VENETOCLAX [Suspect]
     Active Substance: VENETOCLAX
     Indication: Acute myeloid leukaemia
     Dosage: DOSE INCREASE
     Route: 048
     Dates: start: 20240319, end: 20240320
  3. VENETOCLAX [Suspect]
     Active Substance: VENETOCLAX
     Indication: Acute myeloid leukaemia
     Route: 048
     Dates: start: 20240415, end: 20240512
  4. VENETOCLAX [Suspect]
     Active Substance: VENETOCLAX
     Indication: Acute myeloid leukaemia
     Dosage: DOSE REDUCTION, RESPONDING TO TREATMENT AND PROFOUND NEUTROPENIA
     Route: 048
     Dates: start: 20240513, end: 20240609
  5. VENETOCLAX [Suspect]
     Active Substance: VENETOCLAX
     Indication: Acute myeloid leukaemia
     Route: 048
     Dates: start: 20240806, end: 20240902
  6. VENETOCLAX [Suspect]
     Active Substance: VENETOCLAX
     Indication: Acute myeloid leukaemia
     Dosage: DAILY X 14 DAYS?DOSE REDUCTION
     Route: 048
     Dates: start: 20250203, end: 20250203
  7. VENETOCLAX [Suspect]
     Active Substance: VENETOCLAX
     Indication: Acute myeloid leukaemia
     Dosage: SAME DOSE ONGOING
     Route: 048
     Dates: start: 20240610, end: 20240707
  8. VENETOCLAX [Suspect]
     Active Substance: VENETOCLAX
     Indication: Acute myeloid leukaemia
     Route: 048
     Dates: start: 20240708, end: 20240805
  9. VENETOCLAX [Suspect]
     Active Substance: VENETOCLAX
     Indication: Acute myeloid leukaemia
     Dosage: END OF CYCLE
     Route: 048
     Dates: start: 20240320, end: 20240414
  10. VENETOCLAX [Suspect]
     Active Substance: VENETOCLAX
     Indication: Acute myeloid leukaemia
     Dosage: DAILY X 14 DAYS.
     Route: 048
     Dates: start: 20250203, end: 20250310
  11. PIPERACILLIN SODIUM\TAZOBACTAM SODIUM [Concomitant]
     Active Substance: PIPERACILLIN SODIUM\TAZOBACTAM SODIUM
     Indication: Antibiotic therapy
     Route: 042
     Dates: start: 20241002, end: 20241007
  12. DIAZEPAM\ISOPROPAMIDE IODIDE [Concomitant]
     Active Substance: DIAZEPAM\ISOPROPAMIDE IODIDE
     Indication: Oral herpes
     Route: 048
     Dates: start: 20240802, end: 20241003
  13. AMOXICILLIN [Concomitant]
     Active Substance: AMOXICILLIN
     Indication: Antibiotic therapy
     Dosage: 875-125 MG
     Route: 048
     Dates: start: 20250321
  14. AMOXICILLIN [Concomitant]
     Active Substance: AMOXICILLIN
     Indication: Antibiotic therapy
     Route: 048
     Dates: start: 20250214, end: 20250227
  15. AMOXICILLIN [Concomitant]
     Active Substance: AMOXICILLIN
     Indication: Antibiotic therapy
     Dosage: 875-125 MG
     Route: 048
     Dates: start: 20241007, end: 20241011
  16. AMOXICILLIN [Concomitant]
     Active Substance: AMOXICILLIN
     Indication: Antibiotic therapy
     Dosage: 875-125 MG, Q12HRS
     Route: 048
     Dates: start: 20250221, end: 20250328
  17. TYLENOL ARTHRITIS PAIN [Concomitant]
     Active Substance: ACETAMINOPHEN
     Indication: Pain management
     Route: 048
     Dates: start: 20241003
  18. RAPAFLO [Concomitant]
     Active Substance: SILODOSIN
     Indication: Product used for unknown indication
     Route: 048
     Dates: start: 20241003
  19. ONDANSETRON [Concomitant]
     Active Substance: ONDANSETRON
     Indication: Nausea
     Route: 048
     Dates: start: 20240802
  20. OLANZAPINE [Concomitant]
     Active Substance: OLANZAPINE
     Indication: Nausea
     Route: 048
     Dates: start: 20250106
  21. DIFLUCAN [Concomitant]
     Active Substance: FLUCONAZOLE
     Indication: Antifungal treatment
     Route: 048
     Dates: start: 20240927, end: 20241008
  22. MYCOSTATIN [Concomitant]
     Active Substance: NYSTATIN
     Indication: Mucosal infection
     Route: 048
     Dates: start: 20250220, end: 20250303
  23. MYCOSTATIN [Concomitant]
     Active Substance: NYSTATIN
     Indication: Mucosal infection
     Route: 048
     Dates: start: 20250303
  24. LIDOCAINE VISCOUS [Concomitant]
     Active Substance: LIDOCAINE HYDROCHLORIDE
     Indication: Mucosal infection
     Route: 048
     Dates: start: 20250220
  25. LEVAQUIN [Concomitant]
     Active Substance: LEVOFLOXACIN
     Indication: Antibiotic therapy
     Route: 048
     Dates: start: 20250303, end: 20250321
  26. LIPITOR [Concomitant]
     Active Substance: ATORVASTATIN CALCIUM
     Indication: Blood cholesterol abnormal
     Route: 048
     Dates: start: 20220328
  27. ATENOLOL [Concomitant]
     Active Substance: ATENOLOL
     Indication: Product used for unknown indication
     Route: 048
     Dates: start: 20220328, end: 20250321
  28. AVODART [Concomitant]
     Active Substance: DUTASTERIDE
     Indication: Hyperplasia
     Route: 048
     Dates: start: 20220328
  29. ASPIRIN [Concomitant]
     Active Substance: ASPIRIN
     Indication: Cerebrovascular accident prophylaxis
     Route: 048
     Dates: start: 20220328, end: 20250321
  30. LASIX [Concomitant]
     Active Substance: FUROSEMIDE
     Indication: Hypervolaemia
     Route: 042
     Dates: start: 20250319, end: 20250319
  31. COVID-19 vaccine mRNA [Concomitant]
     Indication: COVID-19 immunisation
     Route: 030
  32. COVID-19 vaccine mRNA [Concomitant]
     Indication: COVID-19 immunisation
     Route: 030
  33. COVID-19 vaccine mRNA [Concomitant]
     Indication: COVID-19 immunisation
     Route: 030
  34. COVID-19 vaccine mRNA [Concomitant]
     Indication: COVID-19 immunisation
     Route: 030
  35. AZACITIDINE [Suspect]
     Active Substance: AZACITIDINE
     Indication: Acute myeloid leukaemia
     Dosage: DOSE CHANGE/INTERRUPTION?AZCCITDINE GIVEN MONDAY-FRIDAY STANDARD HERE-NOT GIVEN ON WEEKEND,TREATM...
     Route: 065
     Dates: start: 20240318, end: 20240322
  36. AZACITIDINE [Suspect]
     Active Substance: AZACITIDINE
     Indication: Acute myeloid leukaemia
     Dosage: END OF CYCLE
     Route: 065
     Dates: start: 20240325, end: 20240326
  37. AZACITIDINE [Suspect]
     Active Substance: AZACITIDINE
     Indication: Acute myeloid leukaemia
     Dosage: END OF CYCLE, DOSE CHANGE/INTERRUPTION
     Route: 065
     Dates: start: 20240415, end: 20240419
  38. AZACITIDINE [Suspect]
     Active Substance: AZACITIDINE
     Indication: Acute myeloid leukaemia
     Dosage: AZACITIDINE GIVEN MONDAY TO FRIDAY. NOT THE WEEKENDS. RESUMED MONDAY
     Route: 065
     Dates: start: 20240513, end: 20240517
  39. AZACITIDINE [Suspect]
     Active Substance: AZACITIDINE
     Indication: Acute myeloid leukaemia
     Dosage: DOSE CHANGE/INTERRUPTION
     Route: 065
     Dates: start: 20240422, end: 20240423
  40. AZACITIDINE [Suspect]
     Active Substance: AZACITIDINE
     Indication: Acute myeloid leukaemia
     Dosage: END OF CYCLE
     Route: 065
     Dates: start: 20240521, end: 20240522
  41. AZACITIDINE [Suspect]
     Active Substance: AZACITIDINE
     Indication: Acute myeloid leukaemia
     Dosage: DOSE CHANGE/INTERRUPTION
     Route: 065
     Dates: start: 20240610, end: 20240614
  42. AZACITIDINE [Suspect]
     Active Substance: AZACITIDINE
     Indication: Acute myeloid leukaemia
     Dosage: END OF CYCLE
     Route: 065
     Dates: start: 20240617, end: 20240618
  43. AZACITIDINE [Suspect]
     Active Substance: AZACITIDINE
     Indication: Acute myeloid leukaemia
     Dosage: MEDICATION NOT GIVEN OVER THE WEEKEND
     Route: 065
     Dates: start: 20240708, end: 20240712
  44. AZACITIDINE [Suspect]
     Active Substance: AZACITIDINE
     Indication: Acute myeloid leukaemia
     Route: 065
     Dates: start: 20240715, end: 20240716
  45. AZACITIDINE [Suspect]
     Active Substance: AZACITIDINE
     Indication: Acute myeloid leukaemia
     Dosage: MEDICATION NOT GIVEN OVER THE WEEKEND
     Route: 065
     Dates: start: 20240806, end: 20240809
  46. AZACITIDINE [Suspect]
     Active Substance: AZACITIDINE
     Indication: Acute myeloid leukaemia
     Dosage: MEDICATION NOT GIVEN OVER THE WEEKEND
     Route: 065
     Dates: start: 20240812, end: 20240814
  47. AZACITIDINE [Suspect]
     Active Substance: AZACITIDINE
     Indication: Acute myeloid leukaemia
     Dosage: PATIENT HOSPITALIZED LAST 2 AZACITIDINE INJECTIONS NOT GIVEN
     Route: 065
     Dates: start: 20250203, end: 20250207
  48. NYSTATIN [Concomitant]
     Active Substance: NYSTATIN
     Indication: Mucosal infection
     Route: 048
     Dates: start: 20250220

REACTIONS (1)
  - Thrombocytopenia [Recovered/Resolved]

NARRATIVE: CASE EVENT DATE: 20250210
